FAERS Safety Report 17804745 (Version 2)
Quarter: 2020Q2

REPORT INFORMATION
  Report Type: Spontaneous
  Country: US (occurrence: US)
  Receive Date: 20200519
  Receipt Date: 20200625
  Transmission Date: 20200714
  Serious: No
  Sender: FDA-Public Use
  Company Number: US-PFIZER INC-2020198572

PATIENT
  Age: 63 Year
  Sex: Female
  Weight: 92.97 kg

DRUGS (11)
  1. ONDANSETRON HCL [Concomitant]
     Active Substance: ONDANSETRON HYDROCHLORIDE
     Dosage: 24 MG
  2. OXYCODONE HYDROCHLORIDE. [Concomitant]
     Active Substance: OXYCODONE HYDROCHLORIDE
     Indication: SLEEP DISORDER THERAPY
     Dosage: 15 MG, 1X/DAY,(AT NIGHT)
  3. ANASPAZ [Concomitant]
     Active Substance: HYOSCYAMINE SULFATE
     Dosage: UNK, (0.125 MG)
  4. MORPHINE SULFATE. [Concomitant]
     Active Substance: MORPHINE SULFATE
     Dosage: UNK,(30 MG)
  5. MILK OF MAGNESIA [Concomitant]
     Active Substance: MAGNESIUM HYDROXIDE
     Dosage: UNK
  6. IBUPROFEN. [Concomitant]
     Active Substance: IBUPROFEN
     Dosage: UNK (100%)
  7. POTASSIUM CHLORIDE. [Concomitant]
     Active Substance: POTASSIUM CHLORIDE
     Dosage: UNK
  8. MAGNESIUM HYDROXIDE. [Concomitant]
     Active Substance: MAGNESIUM HYDROXIDE
     Dosage: UNK
  9. CALCIUM +D [Concomitant]
     Active Substance: CALCIUM\VITAMIN D
     Dosage: UNK
  10. IBRANCE [Suspect]
     Active Substance: PALBOCICLIB
     Indication: BREAST CANCER FEMALE
     Dosage: 125 MG, CYCLIC (DAILY 21 DAYS)
     Route: 048
     Dates: start: 20200313
  11. IBRANCE [Suspect]
     Active Substance: PALBOCICLIB
     Dosage: 100 MG, CYCLIC (8 DAYS ON, 7 DAYS OFF)
     Route: 048
     Dates: start: 20200619

REACTIONS (7)
  - Oropharyngeal pain [Unknown]
  - Ear pain [Unknown]
  - White blood cell count decreased [Unknown]
  - Feeling cold [Unknown]
  - Anxiety [Unknown]
  - Hot flush [Unknown]
  - Chills [Unknown]

NARRATIVE: CASE EVENT DATE: 202005
